FAERS Safety Report 12848913 (Version 4)
Quarter: 2017Q1

REPORT INFORMATION
  Report Type: Report from Study
  Country: US (occurrence: US)
  Receive Date: 20161014
  Receipt Date: 20170315
  Transmission Date: 20170428
  Serious: Yes (Hospitalization, Other)
  Sender: FDA-Public Use
  Company Number: US-BAYER-2016-194092

PATIENT
  Age: 69 Year
  Sex: Female

DRUGS (3)
  1. STIVARGA [Suspect]
     Active Substance: REGORAFENIB
     Indication: CARCINOID TUMOUR
     Dosage: 160 MG DAILY
     Route: 048
     Dates: start: 2016, end: 2016
  2. STIVARGA [Suspect]
     Active Substance: REGORAFENIB
     Indication: COLON CANCER METASTATIC
     Dosage: 160 MG DAILY
     Route: 048
     Dates: start: 2016, end: 201612
  3. STIVARGA [Suspect]
     Active Substance: REGORAFENIB
     Indication: COLON CANCER METASTATIC
     Dosage: 160 MG DAILY
     Route: 048
     Dates: start: 20160928, end: 2016

REACTIONS (6)
  - Dyspnoea [None]
  - Rash [None]
  - Blood count abnormal [Recovering/Resolving]
  - Colorectal cancer metastatic [None]
  - Dyspnoea [None]
  - Drug ineffective [None]

NARRATIVE: CASE EVENT DATE: 2016
